FAERS Safety Report 7276597-3 (Version None)
Quarter: 2011Q1

REPORT INFORMATION
  Report Type: 
  Country: None (occurrence: None)
  Receive Date: 20110204
  Receipt Date: 20080827
  Transmission Date: 20110831
  Serious: Yes (Death, Other)
  Sender: FDA-Public Use
  Company Number: US-BAYER-200827482NA

PATIENT
  Sex: Female
  Weight: 83.447 kg

DRUGS (14)
  1. OMNISCAN [Suspect]
     Indication: VENOGRAM
  2. MULTIHANCE [Suspect]
     Indication: NUCLEAR MAGNETIC RESONANCE IMAGING
  3. GADOLINIUM IN UNSPECIFIED DRUG [Suspect]
     Indication: ANGIOGRAM
     Dosage: UNK
     Dates: start: 20011025, end: 20011025
  4. OMNISCAN [Suspect]
     Indication: ARTERIOGRAM
     Dosage: DAILY DOSE 40 ML
     Dates: start: 19990105, end: 19990105
  5. OMNISCAN [Suspect]
     Indication: NUCLEAR MAGNETIC RESONANCE IMAGING
     Dosage: UNK
     Dates: start: 20040802, end: 20040802
  6. MULTIHANCE [Suspect]
     Indication: ARTERIOGRAM
  7. CONTRAST MEDIA [Concomitant]
     Indication: COMPUTERISED TOMOGRAM ABDOMEN
     Dosage: UNK
     Dates: start: 20011119, end: 20011119
  8. OPTIMARK [Suspect]
     Indication: NUCLEAR MAGNETIC RESONANCE IMAGING
  9. PROHANCE [Suspect]
     Indication: ARTERIOGRAM
  10. OPTIRAY 350 [Concomitant]
     Indication: CATHETERISATION CARDIAC
     Dosage: 250 ML, UNK
     Dates: start: 20010403, end: 20010403
  11. OMNISCAN [Suspect]
     Indication: ANGIOGRAM
     Dosage: 0.2 MMOL/KG
     Route: 042
     Dates: start: 20060624, end: 20060624
  12. OPTIMARK [Suspect]
     Indication: ARTERIOGRAM
  13. VISIPAQUE [Concomitant]
     Indication: ANGIOGRAM
     Dosage: UNK
     Dates: start: 20020402, end: 20020402
  14. PROHANCE [Suspect]
     Indication: NUCLEAR MAGNETIC RESONANCE IMAGING
     Dosage: UNK
     Dates: start: 19950124, end: 19950124

REACTIONS (34)
  - EXFOLIATIVE RASH [None]
  - EMOTIONAL DISTRESS [None]
  - ANHEDONIA [None]
  - SKIN MASS [None]
  - BACK PAIN [None]
  - SCAR [None]
  - SUBCUTANEOUS NODULE [None]
  - SKIN HYPERPIGMENTATION [None]
  - PARAESTHESIA [None]
  - NEPHROGENIC SYSTEMIC FIBROSIS [None]
  - JOINT STIFFNESS [None]
  - SKIN INDURATION [None]
  - SCLERODACTYLIA [None]
  - PAIN [None]
  - EXTREMITY CONTRACTURE [None]
  - PAIN OF SKIN [None]
  - JOINT CONTRACTURE [None]
  - SKIN DISCOLOURATION [None]
  - MUSCULOSKELETAL STIFFNESS [None]
  - HYPOAESTHESIA [None]
  - LIMB DEFORMITY [None]
  - SKIN FIBROSIS [None]
  - INJURY [None]
  - MOBILITY DECREASED [None]
  - ARTHRALGIA [None]
  - HYPERAESTHESIA [None]
  - HEADACHE [None]
  - ANXIETY [None]
  - SKIN TIGHTNESS [None]
  - ERYTHEMA [None]
  - OEDEMA PERIPHERAL [None]
  - GENERAL PHYSICAL HEALTH DETERIORATION [None]
  - JOINT RANGE OF MOTION DECREASED [None]
  - PAIN IN EXTREMITY [None]
